FAERS Safety Report 7268023-5 (Version None)
Quarter: 2011Q1

REPORT INFORMATION
  Report Type: 
  Country: None (occurrence: None)
  Receive Date: 20110201
  Receipt Date: 20101018
  Transmission Date: 20110831
  Serious: No
  Sender: FDA-Public Use
  Company Number: US-BAYER-201023106BCC

PATIENT
  Sex: Female
  Weight: 109.9 kg

DRUGS (5)
  1. ALEVE [Suspect]
     Indication: BACK PAIN
     Route: 048
  2. TEGRETOL [Concomitant]
  3. ABILIFY [Concomitant]
  4. ATIVAN [Concomitant]
  5. MIRALAX [Concomitant]

REACTIONS (1)
  - CONSTIPATION [None]
